FAERS Safety Report 11311892 (Version 1)
Quarter: 2015Q3

REPORT INFORMATION
  Report Type: Spontaneous
  Country: US (occurrence: US)
  Receive Date: 20150727
  Receipt Date: 20150727
  Transmission Date: 20151125
  Serious: No
  Sender: FDA-Public Use
  Company Number: US-BIOGENIDEC-2015BI103643

PATIENT
  Sex: Female

DRUGS (1)
  1. TYSABRI [Suspect]
     Active Substance: NATALIZUMAB
     Indication: MULTIPLE SCLEROSIS
     Route: 042
     Dates: start: 20140701, end: 20141218

REACTIONS (6)
  - Nausea [Unknown]
  - Multiple sclerosis [Unknown]
  - Dizziness [Unknown]
  - Back pain [Unknown]
  - Musculoskeletal pain [Unknown]
  - Fatigue [Unknown]
